FAERS Safety Report 6543982-4 (Version None)
Quarter: 2010Q1

REPORT INFORMATION
  Report Type: 
  Country: None (occurrence: None)
  Receive Date: 20100120
  Receipt Date: 20100110
  Transmission Date: 20100710
  Serious: Yes (Other)
  Sender: FDA-Public Use
  Company Number: PHHY2010JP02045

PATIENT
  Age: 73 Year
  Sex: Female

DRUGS (1)
  1. CYCLOSPORINE [Suspect]
     Dosage: UNK
     Route: 048
     Dates: end: 20100107

REACTIONS (2)
  - SPINAL CORD OPERATION [None]
  - THROMBOTIC THROMBOCYTOPENIC PURPURA [None]
